FAERS Safety Report 14196900 (Version 2)
Quarter: 2017Q4

REPORT INFORMATION
  Report Type: Spontaneous
  Country: US (occurrence: US)
  Receive Date: 20171116
  Receipt Date: 20171120
  Transmission Date: 20180321
  Serious: Yes (Other)
  Sender: FDA-Public Use
  Company Number: US-GLAXOSMITHKLINE-US2017GSK176073

PATIENT
  Age: 53 Year
  Sex: Male

DRUGS (1)
  1. LAMICTAL [Suspect]
     Active Substance: LAMOTRIGINE
     Indication: SEIZURE
     Dosage: 200 MG, UNK

REACTIONS (5)
  - General physical health deterioration [Unknown]
  - Unevaluable event [Unknown]
  - Apparent death [Unknown]
  - Drug dose omission [Unknown]
  - Mental disorder [Unknown]

NARRATIVE: CASE EVENT DATE: 20171111
